FAERS Safety Report 23886693 (Version 2)
Quarter: 2024Q2

REPORT INFORMATION
  Report Type: Spontaneous
  Country: RO (occurrence: RO)
  Receive Date: 20240522
  Receipt Date: 20240524
  Transmission Date: 20240716
  Serious: Yes (Other)
  Sender: FDA-Public Use
  Company Number: RO-BRISTOL-MYERS SQUIBB COMPANY-2024-077018

PATIENT
  Age: 68 Year
  Sex: Male

DRUGS (2)
  1. IPILIMUMAB [Suspect]
     Active Substance: IPILIMUMAB
     Indication: Malignant melanoma
     Dates: start: 20230824, end: 20230914
  2. NIVOLUMAB [Suspect]
     Active Substance: NIVOLUMAB
     Indication: Malignant melanoma
     Dosage: DOSE: 2 INDUCTION CYCLES
     Dates: start: 20230824, end: 20230914

REACTIONS (5)
  - Encephalitis [Recovered/Resolved]
  - Hypophysitis [Unknown]
  - Arthritis [Unknown]
  - Pneumonitis [Unknown]
  - Haemolysis [Unknown]

NARRATIVE: CASE EVENT DATE: 20230101
